FAERS Safety Report 16767344 (Version 1)
Quarter: 2019Q3

REPORT INFORMATION
  Report Type: Report from Study
  Country: US (occurrence: US)
  Receive Date: 20190903
  Receipt Date: 20190903
  Transmission Date: 20191005
  Serious: Yes (Other)
  Sender: FDA-Public Use
  Company Number: US-TAKEDA-2019TUS000174

PATIENT
  Sex: Female

DRUGS (7)
  1. BOSULIF [Interacting]
     Active Substance: BOSUTINIB MONOHYDRATE
     Indication: ACUTE MYELOID LEUKAEMIA
     Dosage: 100 MILLIGRAM, QID
     Route: 065
     Dates: start: 20190802
  2. BOSULIF [Interacting]
     Active Substance: BOSUTINIB MONOHYDRATE
     Dosage: UNK
     Route: 065
  3. BOSULIF [Interacting]
     Active Substance: BOSUTINIB MONOHYDRATE
     Indication: ACUTE LYMPHOCYTIC LEUKAEMIA
     Dosage: 400 MILLIGRAM, QD
     Route: 048
     Dates: start: 20190711
  4. PANTOPRAZOLE [Interacting]
     Active Substance: PANTOPRAZOLE
     Indication: GASTROOESOPHAGEAL REFLUX DISEASE
     Dosage: UNK
     Route: 065
  5. PONATINIB [Suspect]
     Active Substance: PONATINIB
     Indication: ACUTE LYMPHOCYTIC LEUKAEMIA
     Dosage: 30 MILLIGRAM, QD
     Route: 048
     Dates: start: 20181222
  6. PONATINIB [Suspect]
     Active Substance: PONATINIB
     Indication: ACUTE MYELOID LEUKAEMIA
  7. ZOFRAN [Suspect]
     Active Substance: ONDANSETRON HYDROCHLORIDE
     Indication: PRODUCT USED FOR UNKNOWN INDICATION
     Dosage: UNK
     Route: 065

REACTIONS (12)
  - Headache [Unknown]
  - Neutropenia [Unknown]
  - Drug interaction [Unknown]
  - Vomiting [Unknown]
  - Retinal tear [Unknown]
  - Feeding disorder [Unknown]
  - Gastrooesophageal reflux disease [Unknown]
  - Nausea [Unknown]
  - Retinitis pigmentosa [Unknown]
  - Off label use [Unknown]
  - Drug ineffective [Unknown]
  - Product use in unapproved indication [Unknown]
